FAERS Safety Report 9118814 (Version 2)
Quarter: 2013Q2

REPORT INFORMATION
  Report Type: Spontaneous
  Country: GB (occurrence: GB)
  Receive Date: 20130226
  Receipt Date: 20130506
  Transmission Date: 20140414
  Serious: Yes (Death)
  Sender: FDA-Public Use
  Company Number: PHFR2013GB001368

PATIENT
  Age: 43 Year
  Sex: Female

DRUGS (8)
  1. CLOZARIL [Suspect]
     Indication: SCHIZOPHRENIA
     Dosage: UNK
     Route: 048
     Dates: start: 20090401
  2. CLOZARIL [Suspect]
     Dosage: 175 MG,
     Route: 048
     Dates: start: 2011
  3. SODIUM VALPROATE [Concomitant]
     Dosage: 2 G, UNK
     Route: 048
  4. SERTRALINE [Concomitant]
     Dosage: 100 MG,
     Route: 048
  5. FESOTERODINE [Concomitant]
     Dosage: 4 MG,
     Route: 048
  6. DOMPERIDONE [Concomitant]
     Dosage: 10 MG, UNK
     Route: 048
  7. BECLOMETASONE [Concomitant]
     Dosage: UNK UKN, UNK
  8. SALBUTAMOL [Concomitant]
     Dosage: UNK

REACTIONS (1)
  - Cardiac arrest [Fatal]
